FAERS Safety Report 9463206 (Version 1)
Quarter: 2013Q3

REPORT INFORMATION
  Report Type: Spontaneous
  Country: GB (occurrence: GB)
  Receive Date: 20130818
  Receipt Date: 20130818
  Transmission Date: 20140515
  Serious: Yes (Other)
  Sender: FDA-Public Use
  Company Number: PHHY2013GB085723

PATIENT
  Age: 55 Year
  Sex: Female
  Weight: 83.46 kg

DRUGS (4)
  1. OMEPRAZOLE [Suspect]
     Dosage: 20 MG, UNK
     Route: 048
     Dates: start: 20130620, end: 20130730
  2. SYMBICORT [Concomitant]
     Route: 055
  3. SALBUTAMOL [Concomitant]
     Route: 055
  4. SPIRIVA [Concomitant]

REACTIONS (5)
  - Swollen tongue [Not Recovered/Not Resolved]
  - Tongue blistering [Not Recovered/Not Resolved]
  - Oral pain [Not Recovered/Not Resolved]
  - Glossodynia [Not Recovered/Not Resolved]
  - Oral discomfort [Not Recovered/Not Resolved]
